FAERS Safety Report 7846567-2 (Version None)
Quarter: 2011Q4

REPORT INFORMATION
  Report Type: 
  Country: None (occurrence: None)
  Receive Date: 20111025
  Receipt Date: 20111010
  Transmission Date: 20120403
  Serious: Yes (Hospitalization)
  Sender: FDA-Public Use
  Company Number: DE-ASTELLAS-2011US006991

PATIENT
  Age: 61 Year
  Sex: Female
  Weight: 64 kg

DRUGS (8)
  1. NALOXONE [Concomitant]
     Indication: PROPHYLAXIS AGAINST GASTROINTESTINAL ULCER
     Dosage: 40 MG, UNKNOWN/D
     Route: 065
     Dates: start: 20110609
  2. PANTOZAL [Concomitant]
     Indication: PROPHYLAXIS AGAINST GASTROINTESTINAL ULCER
     Dosage: 40 MG, UNKNOWN/D
     Route: 065
     Dates: start: 20110609
  3. PREDNISOLONE [Concomitant]
     Indication: RHEUMATOID ARTHRITIS
     Dosage: 5 MG, UNKNOWN/D
     Route: 065
     Dates: start: 20110609
  4. CREON [Concomitant]
     Indication: DYSPEPSIA
     Dosage: UNK
     Route: 065
     Dates: start: 20110609
  5. QENSIL [Concomitant]
     Indication: RHEUMATOID ARTHRITIS
     Dosage: UNK
     Route: 065
  6. ERLOTINIB HYDROCHLORIDE [Suspect]
     Indication: PANCREATIC CARCINOMA
     Dosage: 100 MG, TID
     Route: 048
  7. GEMCITABINE [Suspect]
     Indication: PANCREATIC CARCINOMA
     Dosage: 1816 MG, D1, D8 AND D15, CYCLIC
     Route: 065
  8. DIPYRONE TAB [Concomitant]
     Indication: PAIN
     Dosage: 160 DROPS, UID/QD
     Route: 065
     Dates: start: 20110609

REACTIONS (2)
  - VASCULITIS [None]
  - OVERDOSE [None]
